FAERS Safety Report 4668504-4 (Version None)
Quarter: 2005Q2

REPORT INFORMATION
  Report Type: 
  Country: None (occurrence: None)
  Receive Date: 20050518
  Receipt Date: 20050429
  Transmission Date: 20051028
  Serious: Yes (Hospitalization)
  Sender: FDA-Public Use
  Company Number: B0380146A

PATIENT
  Age: 59 Year
  Sex: Male
  Weight: 79.8331 kg

DRUGS (10)
  1. RELAFEN [Suspect]
     Indication: BACK PAIN
     Dosage: ORAL
     Route: 048
     Dates: start: 20050314, end: 20050319
  2. SOTALOL HCL [Concomitant]
  3. FLECAINIDE ACETATE [Concomitant]
  4. FORTZAAR [Concomitant]
  5. BETAHISTINE HYDROCHLORIDE [Concomitant]
  6. PRAVASTATIN SODIUM [Concomitant]
  7. CLONAZEPAM [Concomitant]
  8. OMEPRAZOLE [Concomitant]
  9. GINKGO BILOBA [Concomitant]
  10. MANIDIPINE [Concomitant]

REACTIONS (5)
  - CONDITION AGGRAVATED [None]
  - EPISTAXIS [None]
  - HEADACHE [None]
  - HYPERTENSION [None]
  - VERTIGO [None]
